FAERS Safety Report 5443738-X (Version None)
Quarter: 2007Q3

REPORT INFORMATION
  Report Type: 
  Country: None (occurrence: None)
  Receive Date: 20070730
  Receipt Date: 20070315
  Transmission Date: 20080115
  Serious: Yes (Hospitalization)
  Sender: FDA-Public Use
  Company Number: 237441

PATIENT
  Age: 69 Year
  Sex: Male
  Weight: 116 kg

DRUGS (13)
  1. RITUXAN [Suspect]
     Indication: NON-HODGKIN'S LYMPHOMA
     Dosage: 375 MG/M2, INTRAVENOUS
     Route: 042
     Dates: start: 20070109, end: 20070109
  2. DOXIL [Suspect]
     Indication: NON-HODGKIN'S LYMPHOMA
     Dosage: 30 MG/M2, INTRAVENOUS
     Route: 042
     Dates: start: 20070111
  3. NITROLINGUAL (NITROGLYCERIN) [Concomitant]
  4. METOPROLOL TARTRATE [Concomitant]
  5. VERAPAMIL (VERAPAMIL HYDROCHLORIDE) [Concomitant]
  6. AMIODARONE HCL [Concomitant]
  7. TRICOR [Concomitant]
  8. DUONEB (ALBUTEROL, ALBUTEROL SULFATE, IPRATROPIUM BROMIDE) [Concomitant]
  9. CRESTOR [Concomitant]
  10. ULTRAM [Concomitant]
  11. PULMICORT [Concomitant]
  12. PEPCID [Concomitant]
  13. OXYCODONE HCL [Concomitant]

REACTIONS (1)
  - DISEASE PROGRESSION [None]
